FAERS Safety Report 8152431-4 (Version None)
Quarter: 2012Q1

REPORT INFORMATION
  Report Type: 
  Country: None (occurrence: None)
  Receive Date: 20120221
  Receipt Date: 20120209
  Transmission Date: 20120608
  Serious: Yes (Other)
  Sender: FDA-Public Use
  Company Number: CA-JNJFOC-20120205731

PATIENT
  Sex: Male
  Weight: 23.13 kg

DRUGS (2)
  1. REMICADE [Suspect]
     Indication: COLITIS ULCERATIVE
     Route: 042
     Dates: start: 20111130
  2. STEROIDS NOS [Concomitant]
     Route: 065

REACTIONS (7)
  - DRUG INEFFECTIVE [None]
  - ABDOMINAL PAIN UPPER [None]
  - FATIGUE [None]
  - NAUSEA [None]
  - VOMITING [None]
  - APPETITE DISORDER [None]
  - HAEMATOCHEZIA [None]
